FAERS Safety Report 5654969-8 (Version None)
Quarter: 2008Q1

REPORT INFORMATION
  Report Type: 
  Country: None (occurrence: None)
  Receive Date: 20080307
  Receipt Date: 20070928
  Transmission Date: 20080703
  Serious: No
  Sender: FDA-Public Use
  Company Number: A0685019A

PATIENT
  Age: 77 Year
  Sex: Female

DRUGS (5)
  1. REQUIP [Suspect]
     Indication: RESTLESS LEGS SYNDROME
     Dosage: .25MG PER DAY
     Route: 048
     Dates: start: 20070921
  2. VERAPAMIL [Concomitant]
  3. LIPITOR [Concomitant]
  4. ASPIRIN [Concomitant]
  5. MULTI-VITAMIN [Concomitant]

REACTIONS (3)
  - DIZZINESS [None]
  - NAUSEA [None]
  - RETCHING [None]
